FAERS Safety Report 13069411 (Version 1)
Quarter: 2016Q4

REPORT INFORMATION
  Report Type: Spontaneous
  Country: AU (occurrence: AU)
  Receive Date: 20161228
  Receipt Date: 20161228
  Transmission Date: 20170207
  Serious: Yes (Other)
  Sender: FDA-Public Use
  Company Number: AU-MYLANLABS-2016M1057483

PATIENT

DRUGS (3)
  1. ATROPINE. [Suspect]
     Active Substance: ATROPINE
     Indication: IRIS ADHESIONS
     Dosage: 2MG ATROPINE IN 0.2ML; ADMINISTRATION OF 1ML IN FOUR 0.25ML BLEBS
     Route: 057
  2. EPINEPHRINE. [Suspect]
     Active Substance: EPINEPHRINE
     Indication: IRIS ADHESIONS
     Dosage: 200MICROG EPINEPHRINE IN 0.2ML; ADMINISTRATION OF 1ML IN FOUR 0.25ML BLEBS
     Route: 057
  3. LIDOCAINE. [Suspect]
     Active Substance: LIDOCAINE
     Indication: IRIS ADHESIONS
     Dosage: 12MG LIDOCAINE IN 0.6ML; ADMINISTRATION OF 1ML IN FOUR 0.25ML BLEBS
     Route: 057

REACTIONS (1)
  - Stress cardiomyopathy [Recovered/Resolved]
